FAERS Safety Report 12927918 (Version 1)
Quarter: 2016Q4

REPORT INFORMATION
  Report Type: Spontaneous
  Country: US (occurrence: US)
  Receive Date: 20161110
  Receipt Date: 20161110
  Transmission Date: 20170207
  Serious: Yes (Other)
  Sender: FDA-Public Use
  Company Number: US-CONCORDIA PHARMACEUTICALS INC.-GSH201611-005634

PATIENT
  Sex: Female

DRUGS (5)
  1. METHOTREXATE. [Concomitant]
     Active Substance: METHOTREXATE
     Indication: RHEUMATOID ARTHRITIS
     Dates: start: 20150903
  2. PLAQUENIL [Suspect]
     Active Substance: HYDROXYCHLOROQUINE SULFATE
     Dates: start: 201511, end: 20160910
  3. LEFLUNOMIDE. [Suspect]
     Active Substance: LEFLUNOMIDE
     Dates: start: 201504, end: 20160910
  4. LEFLUNOMIDE. [Suspect]
     Active Substance: LEFLUNOMIDE
  5. PREDNISONE. [Suspect]
     Active Substance: PREDNISONE
     Dates: start: 201511, end: 20160910

REACTIONS (6)
  - Pain in extremity [Unknown]
  - Gait disturbance [Unknown]
  - Dysstasia [Unknown]
  - Peripheral swelling [Unknown]
  - Drug ineffective [Unknown]
  - Alopecia [Unknown]
